FAERS Safety Report 18526872 (Version 1)
Quarter: 2020Q4

REPORT INFORMATION
  Report Type: Spontaneous
  Country: DE (occurrence: DE)
  Receive Date: 20201120
  Receipt Date: 20201120
  Transmission Date: 20210114
  Serious: Yes (Hospitalization)
  Sender: FDA-Public Use
  Company Number: DE-TEVA-2020-DE-1850053

PATIENT
  Age: 81 Year
  Sex: Female
  Weight: 75 kg

DRUGS (10)
  1. AMIODARON [Suspect]
     Active Substance: AMIODARONE
     Dosage: 200 MG, DISCONTINUED ON 28082020
     Route: 048
     Dates: end: 20200828
  2. METOPROLOL. [Concomitant]
     Active Substance: METOPROLOL
     Dosage: 190 MILLIGRAM DAILY;  1-0-1-0
     Route: 048
  3. PANTOPRAZOL [Concomitant]
     Active Substance: PANTOPRAZOLE SODIUM
     Dosage: 40 MILLIGRAM DAILY;  0-0-1-0
     Route: 048
  4. LEVOTHYROXINE SODIUM. [Concomitant]
     Active Substance: LEVOTHYROXINE SODIUM
     Dosage: .5 DOSAGE FORMS DAILY; 100 MICROGRAM, 0.5-0-0-0
     Route: 048
  5. EPLERENON [Concomitant]
     Active Substance: EPLERENONE
     Dosage: 25 MILLIGRAM DAILY;  1-0-0-0
     Route: 048
  6. ENTRESTO [Concomitant]
     Active Substance: SACUBITRIL\VALSARTAN
     Dosage: 2 DOSAGE FORMS DAILY; 49|51 MG, 1-0-1-0
     Route: 048
  7. IVABRADIN [Concomitant]
     Active Substance: IVABRADINE
     Dosage: 1 DOSAGE FORMS DAILY; 5 MG, 0.5-0-0.5-0
     Route: 048
  8. CLOPIDOGREL [Concomitant]
     Active Substance: CLOPIDOGREL BISULFATE
     Dosage: 75 MILLIGRAM DAILY; 1-0-0-0
     Route: 048
  9. ATORVASTATIN [Concomitant]
     Active Substance: ATORVASTATIN
     Dosage: .5 DOSAGE FORMS DAILY; 20 MG, 0-0-0.5-0
     Route: 048
  10. ACETYLSALICYLSAEURE [Concomitant]
     Active Substance: ASPIRIN
     Dosage: 100 MILLIGRAM DAILY; 1-0-0-0
     Route: 048

REACTIONS (3)
  - Liver function test abnormal [Unknown]
  - Drug-induced liver injury [Unknown]
  - General physical health deterioration [Unknown]
